FAERS Safety Report 6967258-6 (Version None)
Quarter: 2010Q3

REPORT INFORMATION
  Report Type: 
  Country: None (occurrence: None)
  Receive Date: 20100907
  Receipt Date: 20100830
  Transmission Date: 20110219
  Serious: Yes (Other)
  Sender: FDA-Public Use
  Company Number: PHHY2010US24164

PATIENT
  Sex: Female
  Weight: 205 kg

DRUGS (5)
  1. EXTAVIA [Suspect]
     Indication: MULTIPLE SCLEROSIS
     Dosage: 0.1875 QOD
     Route: 058
     Dates: start: 20100311
  2. EXTAVIA [Suspect]
     Dosage: 0.25 MG, QOD
     Route: 058
  3. MOTRIN [Concomitant]
     Indication: HEADACHE
     Dosage: 800 MG, PRN
  4. FOLIC ACID [Concomitant]
     Indication: BLOOD HOMOCYSTEINE INCREASED
     Dosage: 1 MG, QD
     Dates: start: 20090925
  5. VICODIN [Concomitant]
     Dosage: 7.5/325 MG PRN

REACTIONS (13)
  - ASTHENIA [None]
  - CHILLS [None]
  - GENERAL PHYSICAL HEALTH DETERIORATION [None]
  - HEADACHE [None]
  - INJECTION SITE DISCOLOURATION [None]
  - INJECTION SITE HAEMATOMA [None]
  - INJECTION SITE MASS [None]
  - INJECTION SITE PAIN [None]
  - INJECTION SITE REACTION [None]
  - LOWER EXTREMITY MASS [None]
  - MALAISE [None]
  - PLATELET COUNT DECREASED [None]
  - SPEECH DISORDER [None]
